FAERS Safety Report 24636838 (Version 1)
Quarter: 2024Q4

REPORT INFORMATION
  Report Type: Spontaneous
  Country: US (occurrence: US)
  Receive Date: 20241119
  Receipt Date: 20241119
  Transmission Date: 20250115
  Serious: No
  Sender: PAREXEL
  Company Number: US-COHERUS BIOSCIENCES INC-2024-COH-US000845

PATIENT

DRUGS (5)
  1. UDENYCA [Suspect]
     Active Substance: PEGFILGRASTIM-CBQV
     Indication: Chemotherapy
     Dosage: 6 MG, Q2WEEKS
     Route: 058
     Dates: start: 20240814
  2. DACARBAZINE [Concomitant]
     Active Substance: DACARBAZINE
     Dosage: UNK
  3. DOXORUBICIN [Concomitant]
     Active Substance: DOXORUBICIN
     Dosage: UNK
  4. NIVOLUMAB [Concomitant]
     Active Substance: NIVOLUMAB
     Dosage: UNK
  5. VINBLASTINE [Concomitant]
     Active Substance: VINBLASTINE
     Dosage: UNK

REACTIONS (2)
  - Rash [Recovered/Resolved]
  - Product adhesion issue [Unknown]

NARRATIVE: CASE EVENT DATE: 20240814
